FAERS Safety Report 21789755 (Version 1)
Quarter: 2022Q4

REPORT INFORMATION
  Report Type: Other
  Country: US (occurrence: None)
  Receive Date: 20221228
  Receipt Date: 20221228
  Transmission Date: 20230112
  Serious: No
  Sender: FDA-Public Use
  Company Number: US-ROCHE-3248743

PATIENT
  Age: 58 Year
  Sex: Female
  Weight: 84.444 kg

DRUGS (23)
  1. OCREVUS [Suspect]
     Active Substance: OCRELIZUMAB
     Indication: Relapsing-remitting multiple sclerosis
     Dosage: ONGOING:YES
     Route: 042
     Dates: start: 2016
  2. OCREVUS [Suspect]
     Active Substance: OCRELIZUMAB
     Indication: Primary progressive multiple sclerosis
  3. VALIUM [Suspect]
     Active Substance: DIAZEPAM
     Indication: Muscle spasms
     Route: 048
     Dates: start: 2015
  4. VALIUM [Suspect]
     Active Substance: DIAZEPAM
     Indication: Pain
  5. BACLOFEN [Concomitant]
     Active Substance: BACLOFEN
     Indication: Muscle spasms
     Route: 048
  6. HYDROXYCHLOROQUINE [Concomitant]
     Active Substance: HYDROXYCHLOROQUINE
     Indication: Rheumatoid arthritis
     Route: 048
     Dates: start: 2016
  7. PREGABALIN [Concomitant]
     Active Substance: PREGABALIN
     Indication: Neuropathy peripheral
     Route: 048
  8. LEVOTHYROXINE [Concomitant]
     Active Substance: LEVOTHYROXINE
     Route: 048
     Dates: start: 2016
  9. NALTREXONE [Concomitant]
     Active Substance: NALTREXONE
     Indication: Pain
     Route: 048
     Dates: start: 2016
  10. DRONABINOL [Concomitant]
     Active Substance: DRONABINOL
     Route: 048
  11. DRONABINOL [Concomitant]
     Active Substance: DRONABINOL
     Dosage: AS NEEDED FOR PAIN; COMBO INDICA AND SATIVA ;ONGOING: YES
     Route: 048
  12. ROBAXIN [Concomitant]
     Active Substance: METHOCARBAMOL
     Indication: Muscle spasms
     Route: 048
  13. XYZAL [Concomitant]
     Active Substance: LEVOCETIRIZINE DIHYDROCHLORIDE
     Indication: Chronic sinusitis
     Route: 048
  14. MAGNESIUM GLUCONATE [Concomitant]
     Active Substance: MAGNESIUM GLUCONATE
     Route: 048
     Dates: start: 2022
  15. DIETARY SUPPLEMENT\HERBALS\MILK THISTLE [Concomitant]
     Active Substance: DIETARY SUPPLEMENT\HERBALS\MILK THISTLE
     Route: 048
     Dates: end: 2022
  16. VITAMIN D3 [Concomitant]
     Active Substance: CHOLECALCIFEROL
     Route: 048
     Dates: end: 2022
  17. VITAMIN D3 [Concomitant]
     Active Substance: CHOLECALCIFEROL
     Route: 048
  18. BIOTIN [Concomitant]
     Active Substance: BIOTIN
     Indication: Alopecia
     Route: 048
     Dates: end: 2022
  19. HERBALS\TURMERIC [Concomitant]
     Active Substance: HERBALS\TURMERIC
     Indication: Pain
     Route: 048
     Dates: end: 2022
  20. GINGER [Concomitant]
     Active Substance: GINGER
     Route: 048
     Dates: end: 2022
  21. PS 100 [Concomitant]
     Route: 048
     Dates: end: 2022
  22. NAC (UNITED STATES) [Concomitant]
     Route: 048
     Dates: end: 2022
  23. CARBAMAZEPINE [Concomitant]
     Active Substance: CARBAMAZEPINE
     Indication: Muscle spasms
     Route: 048
     Dates: start: 202204

REACTIONS (14)
  - Alopecia [Not Recovered/Not Resolved]
  - Weight increased [Not Recovered/Not Resolved]
  - Fatigue [Not Recovered/Not Resolved]
  - Muscle spasms [Not Recovered/Not Resolved]
  - Neuralgia [Not Recovered/Not Resolved]
  - Balance disorder [Not Recovered/Not Resolved]
  - Incontinence [Not Recovered/Not Resolved]
  - Pelvic floor dysfunction [Not Recovered/Not Resolved]
  - Rheumatoid arthritis [Not Recovered/Not Resolved]
  - Visual impairment [Not Recovered/Not Resolved]
  - Influenza [Recovered/Resolved]
  - Muscle tightness [Not Recovered/Not Resolved]
  - Dysphagia [Unknown]
  - Fall [Unknown]

NARRATIVE: CASE EVENT DATE: 20160101
